FAERS Safety Report 8378642-0 (Version None)
Quarter: 2012Q2

REPORT INFORMATION
  Report Type: 
  Country: None (occurrence: None)
  Receive Date: 20120522
  Receipt Date: 20110706
  Transmission Date: 20120825
  Serious: No
  Sender: FDA-Public Use
  Company Number: US-ASTRAZENECA-2011SE40564

PATIENT
  Age: 65 Year
  Sex: Male

DRUGS (1)
  1. OMEPRAZOLE [Suspect]
     Route: 048

REACTIONS (3)
  - ENDOSCOPY [None]
  - DRUG EFFECT DECREASED [None]
  - GASTRIC MUCOSAL LESION [None]
